FAERS Safety Report 8538612-6 (Version None)
Quarter: 2012Q3

REPORT INFORMATION
  Report Type: 
  Country: None (occurrence: None)
  Receive Date: 20120718
  Receipt Date: 20120718
  Transmission Date: 20120928
  Serious: Yes (Life-Threatening)
  Sender: FDA-Public Use
  Company Number: None

PATIENT
  Age: 66 Year
  Sex: Female
  Weight: 82.5547 kg

DRUGS (1)
  1. NIASPAN [Suspect]
     Indication: LOW DENSITY LIPOPROTEIN INCREASED
     Dosage: 500 MG 1 DAILY PM
     Dates: start: 20120613, end: 20120618

REACTIONS (9)
  - DYSPNOEA [None]
  - RASH MORBILLIFORM [None]
  - ODYNOPHAGIA [None]
  - SKIN BURNING SENSATION [None]
  - PRURITUS [None]
  - PAIN [None]
  - PARAESTHESIA [None]
  - THROAT IRRITATION [None]
  - RASH GENERALISED [None]
